FAERS Safety Report 8229059-0 (Version None)
Quarter: 2012Q1

REPORT INFORMATION
  Report Type: 
  Country: None (occurrence: None)
  Receive Date: 20120322
  Receipt Date: 20120308
  Transmission Date: 20120608
  Serious: Yes (Hospitalization)
  Sender: FDA-Public Use
  Company Number: US-ROCHE-1050267

PATIENT
  Sex: Male
  Weight: 62.652 kg

DRUGS (1)
  1. XELODA [Suspect]
     Indication: COLON CANCER
     Route: 048
     Dates: start: 20110929, end: 20111103

REACTIONS (8)
  - ORAL PAIN [None]
  - DEHYDRATION [None]
  - ONYCHOMADESIS [None]
  - DYSARTHRIA [None]
  - DIARRHOEA [None]
  - PERIORBITAL HAEMATOMA [None]
  - DYSPNOEA [None]
  - TONGUE HAEMORRHAGE [None]
